FAERS Safety Report 9708909 (Version 1)
Quarter: 2013Q4

REPORT INFORMATION
  Report Type: Spontaneous
  Country: JP (occurrence: JP)
  Receive Date: 20131125
  Receipt Date: 20131125
  Transmission Date: 20140711
  Serious: Yes (Other)
  Sender: FDA-Public Use
  Company Number: JP-UCBSA-103892

PATIENT
  Age: 46 Year
  Sex: Female

DRUGS (1)
  1. XYZAL [Suspect]
     Route: 048
     Dates: start: 201301, end: 201303

REACTIONS (1)
  - Agranulocytosis [Unknown]
